FAERS Safety Report 25199722 (Version 1)
Quarter: 2025Q2

REPORT INFORMATION
  Report Type: Spontaneous
  Country: US (occurrence: None)
  Receive Date: 20250415
  Receipt Date: 20250415
  Transmission Date: 20250716
  Serious: Yes (Other)
  Sender: FDA-CTU
  Company Number: None

PATIENT
  Age: 70 Year
  Sex: Female
  Weight: 82.55 kg

DRUGS (10)
  1. TRADJENTA [Suspect]
     Active Substance: LINAGLIPTIN
     Indication: Blood glucose abnormal
     Dosage: 30 TABLETS 1 DAILY BY MOUTH??DTE TH PRSON STPPED TAKING: 3RD WEEK?
     Route: 048
     Dates: start: 20250101
  2. OLMESARTAN [Concomitant]
     Active Substance: OLMESARTAN
  3. AMLODIPINE [Concomitant]
     Active Substance: AMLODIPINE BESYLATE
  4. EZETIMIBE [Concomitant]
     Active Substance: EZETIMIBE
  5. COENZYME Q10 [Concomitant]
     Active Substance: DIETARY SUPPLEMENT\UBIDECARENONE
  6. ASPIRIN [Concomitant]
     Active Substance: ASPIRIN
  7. MAGNESIUM [Concomitant]
     Active Substance: MAGNESIUM
  8. GLYCINATE [Concomitant]
  9. VIT. D3 [Concomitant]
  10. ECHINACEA [Concomitant]
     Active Substance: ECHINACEA, UNSPECIFIED

REACTIONS (1)
  - Constipation [None]

NARRATIVE: CASE EVENT DATE: 20250201
